FAERS Safety Report 16065367 (Version 2)
Quarter: 2019Q1

REPORT INFORMATION
  Report Type: Spontaneous
  Country: US (occurrence: US)
  Receive Date: 20190313
  Receipt Date: 20190322
  Transmission Date: 20190418
  Serious: Yes (Death, Hospitalization)
  Sender: FDA-Public Use
  Company Number: US-UNITED THERAPEUTICS-UNT-2019-004499

PATIENT
  Age: 55 Year
  Sex: Female
  Weight: 144.67 kg

DRUGS (1)
  1. REMODULIN [Suspect]
     Active Substance: TREPROSTINIL
     Indication: PULMONARY ARTERIAL HYPERTENSION
     Dosage: 0.030 ?G/KG, CONTINUING
     Route: 058
     Dates: start: 20170615

REACTIONS (3)
  - Peripheral swelling [Unknown]
  - Localised oedema [Unknown]
  - Death [Fatal]

NARRATIVE: CASE EVENT DATE: 20190225
